FAERS Safety Report 5963499-5 (Version None)
Quarter: 2008Q4

REPORT INFORMATION
  Report Type: 
  Country: None (occurrence: None)
  Receive Date: 20081124
  Receipt Date: 20081120
  Transmission Date: 20090506
  Serious: Yes (Death, Life-Threatening, Other)
  Sender: FDA-Public Use
  Company Number: US-BRISTOL-MYERS SQUIBB COMPANY-12403424

PATIENT
  Age: 75 Year
  Sex: Male

DRUGS (3)
  1. CISPLATIN [Suspect]
     Indication: BLADDER CANCER
     Dosage: ADMINISTERED ON DAY 1
     Route: 042
     Dates: start: 20030424, end: 20030605
  2. PACLITAXEL [Suspect]
     Indication: BLADDER CANCER
     Route: 042
     Dates: start: 20030424, end: 20030612
  3. GEMZAR [Suspect]
     Indication: BLADDER CANCER
     Dosage: DAYS 1 AND 8
     Route: 042
     Dates: start: 20030424, end: 20030612

REACTIONS (2)
  - BONE MARROW FAILURE [None]
  - MALIGNANT NEOPLASM PROGRESSION [None]
